FAERS Safety Report 25851633 (Version 1)
Quarter: 2025Q3

REPORT INFORMATION
  Report Type: Spontaneous
  Country: JP (occurrence: JP)
  Receive Date: 20250926
  Receipt Date: 20250926
  Transmission Date: 20251021
  Serious: Yes (Other)
  Sender: RANBAXY
  Company Number: JP-SUN PHARMACEUTICAL INDUSTRIES LTD-2025RR-528543

PATIENT
  Age: 62 Year
  Sex: Female

DRUGS (5)
  1. PREDNISOLONE [Suspect]
     Active Substance: PREDNISOLONE
     Indication: Cardiac sarcoidosis
     Route: 065
  2. DOBUTAMINE [Suspect]
     Active Substance: DOBUTAMINE HYDROCHLORIDE
     Indication: Prophylaxis
     Route: 065
  3. SILDENAFIL [Suspect]
     Active Substance: SILDENAFIL
     Indication: Right ventricular failure
     Dosage: 60 MILLIGRAM, DAILY
     Route: 065
  4. MILRINONE [Suspect]
     Active Substance: MILRINONE
     Indication: Prophylaxis
     Route: 065
  5. PIMOBENDAN [Suspect]
     Active Substance: PIMOBENDAN
     Indication: Right ventricular failure
     Dosage: 5 MILLIGRAM, DAILY
     Route: 048

REACTIONS (2)
  - Drug ineffective [Unknown]
  - Diabetes mellitus [Recovered/Resolved]
